FAERS Safety Report 18484543 (Version 1)
Quarter: 2020Q4

REPORT INFORMATION
  Report Type: Spontaneous
  Country: CH (occurrence: CH)
  Receive Date: 20201110
  Receipt Date: 20201110
  Transmission Date: 20210114
  Serious: Yes (Hospitalization)
  Sender: FDA-Public Use
  Company Number: CH-ROCHE-2706043

PATIENT
  Age: 43 Year
  Sex: Female

DRUGS (9)
  1. ALENDRONATE [Concomitant]
     Active Substance: ALENDRONATE SODIUM
  2. VENTOLIN [Concomitant]
     Active Substance: ALBUTEROL SULFATE
  3. OLFEN (SWITZERLAND) [Concomitant]
  4. SINGULAIR [Concomitant]
     Active Substance: MONTELUKAST SODIUM
  5. SERETIDE [Concomitant]
     Active Substance: FLUTICASONE PROPIONATE\SALMETEROL XINAFOATE
  6. ACTEMRA [Suspect]
     Active Substance: TOCILIZUMAB
     Indication: PRODUCT USED FOR UNKNOWN INDICATION
     Dosage: ADDITIONAL INFO: ; ROUTE:041
     Route: 041
     Dates: start: 2011, end: 202009
  7. ESOMEP [Concomitant]
     Active Substance: ESOMEPRAZOLE
  8. PREDNISON STREULI [Concomitant]
     Active Substance: PREDNISONE
     Route: 048
     Dates: start: 20200905
  9. AMLODIPIN-MEPHA [Concomitant]
     Active Substance: AMLODIPINE MESYLATE

REACTIONS (2)
  - Shrinking lung syndrome [Not Recovered/Not Resolved]
  - Systemic lupus erythematosus [Not Recovered/Not Resolved]

NARRATIVE: CASE EVENT DATE: 2020
